FAERS Safety Report 14064632 (Version 3)
Quarter: 2018Q2

REPORT INFORMATION
  Report Type: Spontaneous
  Country: CH (occurrence: CH)
  Receive Date: 20171009
  Receipt Date: 20180412
  Transmission Date: 20180711
  Serious: Yes (Hospitalization)
  Sender: FDA-Public Use
  Company Number: CH-PFIZER INC-2017426742

PATIENT
  Age: 10 Year
  Sex: Male

DRUGS (26)
  1. LYRICA [Suspect]
     Active Substance: PREGABALIN
     Dosage: 50 MG, THRICE A DAY
     Route: 048
     Dates: start: 2017, end: 201708
  2. OSPEN /00001801/ [Concomitant]
     Dosage: 1000000 IU, 1X/DAY
     Route: 048
  3. BACTRIM [Concomitant]
     Active Substance: SULFAMETHOXAZOLE\TRIMETHOPRIM
     Dosage: 160 MG, ONCE DAILY 3 DAYS WEEKLY
     Route: 048
  4. LYRICA [Suspect]
     Active Substance: PREGABALIN
     Dosage: 25 MG, TWICE A DAY
     Route: 048
     Dates: start: 20170810, end: 20170814
  5. VORICONAZOL [Concomitant]
     Active Substance: VORICONAZOLE
     Dosage: 200 MG, ONCE EVERY 12 HOURS
     Route: 048
  6. PERFALGAN [Concomitant]
     Active Substance: ACETAMINOPHEN
     Dosage: 500 MG, BY INJECTION (11.85 MG/KG)
  7. PERFALGAN [Concomitant]
     Active Substance: ACETAMINOPHEN
     Dosage: 600 MG, MAXIMUM ONCE EVERY 6 HOURS AS NEEDED
     Route: 042
  8. PALLADON [Concomitant]
     Active Substance: HYDROMORPHONE
     Dosage: 2.6 MG, 2X/DAY (ONCE EVERY 12 HOURS)
     Route: 048
     Dates: end: 20170803
  9. PALLADON [Concomitant]
     Active Substance: HYDROMORPHONE
     Dosage: 0.8 MG, ONCE EVERY 8 HOURS (MAXIMUM) AS NEEDED
     Route: 048
  10. ATARAX [Concomitant]
     Active Substance: HYDROXYZINE HYDROCHLORIDE
     Dosage: 50 MG, EVERY 12 HOURS
     Route: 048
  11. IMPORTAL [Concomitant]
     Active Substance: LACTITOL
     Dosage: 10 ML, DAILY
     Route: 048
  12. CELLCEPT [Concomitant]
     Active Substance: MYCOPHENOLATE MOFETIL\MYCOPHENOLATE MOFETIL HYDROCHLORIDE
     Dosage: 0.5 G, TWICE DAILY
     Route: 048
  13. LYRICA [Suspect]
     Active Substance: PREGABALIN
     Dosage: 75 MG, DAILY  (25 MG IN THE MORNING, 50 MG IN THE EVENING)
     Route: 048
     Dates: start: 20170809, end: 20170809
  14. TAVEGYL [Concomitant]
     Active Substance: CLEMASTINE FUMARATE
     Dosage: 1 MG, FOUR TIMES DAILY (MAX) BY INTRAVENOUS ROUTE WITHIN 3 MINUTES AS NEEDED
     Route: 042
  15. ACICLOVIR [Concomitant]
     Active Substance: ACYCLOVIR
     Dosage: 620 MG, EVERY 8 HOURS
     Route: 042
  16. TAVEGYL [Concomitant]
     Active Substance: CLEMASTINE FUMARATE
     Dosage: 1 MG, EVERY 12 HOURS
     Route: 042
  17. PREDNISOLONE. [Concomitant]
     Active Substance: PREDNISOLONE
     Dosage: 12 MG, TWICE DAILY
     Route: 048
  18. PIPERACILLIN AND TAZOBACTAM [Concomitant]
     Active Substance: PIPERACILLIN SODIUM\TAZOBACTAM SODIUM
     Dosage: 4000 MG, INJECTION MAXIMUM ONCE EVERY 8 HOURS AS NEEDED
     Route: 042
  19. NIFEDIPIN [Concomitant]
     Active Substance: NIFEDIPINE
     Dosage: 2.5 MG, THRICE DAILY (MAXIMUM) AS NEEDED
     Route: 048
  20. LYRICA [Suspect]
     Active Substance: PREGABALIN
     Indication: POST HERPETIC NEURALGIA
     Dosage: 25 MG, ONCE A DAY
     Route: 048
     Dates: start: 20170728, end: 2017
  21. LYRICA [Suspect]
     Active Substance: PREGABALIN
     Dosage: 50 MG, TWICE A DAY
     Route: 048
     Dates: start: 20170803, end: 20170808
  22. PRIVIGEN [Concomitant]
     Active Substance: HUMAN IMMUNOGLOBULIN G
     Dosage: 15 G, BY INJECTION
  23. ONDANSETRON [Concomitant]
     Active Substance: ONDANSETRON
     Dosage: 8 MG, THREE TIMES DAILY AS NEEDED
     Route: 048
  24. AMLODIPINE [Concomitant]
     Active Substance: AMLODIPINE BESYLATE
     Dosage: 7.5 MG, DAILY, 5 MG TABLET ONCE DAILY IN THE MORNING AND 2.5 MG ONCE IN THE EVENING
     Route: 048
  25. VI-DE 3 [Concomitant]
     Active Substance: CHOLECALCIFEROL
     Dosage: 500 IU, ONCE DAILY
     Route: 048
  26. LAXOBERON [Concomitant]
     Active Substance: SODIUM PICOSULFATE
     Dosage: 10 MG, MAXIMUM ONCE DAILY IN THE EVENING AS NEEDED IF CONSTIPATION
     Route: 048

REACTIONS (5)
  - Oedema [Recovered/Resolved]
  - Somnolence [Recovered/Resolved]
  - Oedema peripheral [Recovered/Resolved]
  - Pericardial effusion [Recovering/Resolving]
  - Product use issue [Recovered/Resolved]

NARRATIVE: CASE EVENT DATE: 20170728
